FAERS Safety Report 10204628 (Version 1)
Quarter: 2014Q2

REPORT INFORMATION
  Report Type: Spontaneous
  Country: US (occurrence: US)
  Receive Date: 20140529
  Receipt Date: 20140529
  Transmission Date: 20141212
  Serious: No
  Sender: FDA-Public Use
  Company Number: US-009507513-1405USA013010

PATIENT
  Sex: Female

DRUGS (1)
  1. NASONEX [Suspect]

REACTIONS (3)
  - Sinus disorder [Unknown]
  - Ear pain [Unknown]
  - Headache [Unknown]
